FAERS Safety Report 6043741-5 (Version None)
Quarter: 2009Q1

REPORT INFORMATION
  Report Type: 
  Country: None (occurrence: None)
  Receive Date: 20090120
  Receipt Date: 20090115
  Transmission Date: 20090719
  Serious: Yes (Hospitalization, Other)
  Sender: FDA-Public Use
  Company Number: JP-JNJFOC-20081104757

PATIENT
  Sex: Female
  Weight: 60 kg

DRUGS (6)
  1. ITRIZOLE [Suspect]
     Route: 048
  2. ITRIZOLE [Suspect]
     Indication: ONYCHOMYCOSIS
     Dosage: PULSE THERAPY
     Route: 048
  3. NORVASC [Concomitant]
     Indication: HYPERTENSION
     Route: 048
  4. MEVALOTIN [Concomitant]
     Indication: HYPERLIPIDAEMIA
     Route: 048
  5. BUFFERIN [Concomitant]
     Indication: HYPERTENSION
     Dosage: ALTERNATE DAYS
     Route: 048
  6. CETIRIZINE HYDROCHLORIDE [Concomitant]
     Route: 048

REACTIONS (7)
  - BLISTER [None]
  - CELLULITIS [None]
  - HEPATIC FUNCTION ABNORMAL [None]
  - INFECTION [None]
  - OEDEMA [None]
  - SKIN ULCER [None]
  - VASCULITIS [None]
